FAERS Safety Report 8355312-6 (Version None)
Quarter: 2012Q2

REPORT INFORMATION
  Report Type: 
  Country: None (occurrence: None)
  Receive Date: 20120511
  Receipt Date: 20110610
  Transmission Date: 20120825
  Serious: No
  Sender: FDA-Public Use
  Company Number: US-TEVA-2011002953

PATIENT
  Sex: Female
  Weight: 86.26 kg

DRUGS (3)
  1. LAMICTAL [Concomitant]
     Dates: start: 20101101
  2. SERTRALINE HYDROCHLORIDE [Concomitant]
     Dates: start: 20090101
  3. NUVIGIL [Suspect]
     Indication: FATIGUE
     Dosage: 150 MILLIGRAM;
     Route: 048
     Dates: start: 20110609

REACTIONS (4)
  - FAECES DISCOLOURED [None]
  - VOMITING [None]
  - NAUSEA [None]
  - URINE ABNORMALITY [None]
